FAERS Safety Report 4357988-7 (Version None)
Quarter: 2004Q2

REPORT INFORMATION
  Report Type: 
  Country: None (occurrence: None)
  Receive Date: 20040510
  Receipt Date: 20040503
  Transmission Date: 20050107
  Serious: Yes (Death)
  Sender: FDA-Public Use
  Company Number: 2004UW09063

PATIENT
  Age: 61 Year
  Sex: Male

DRUGS (1)
  1. IRESSA [Suspect]
     Indication: LUNG CANCER METASTATIC
     Dosage: 250 MG PO
     Route: 048

REACTIONS (1)
  - METASTASES TO LIVER [None]
